FAERS Safety Report 15857526 (Version 1)
Quarter: 2019Q1

REPORT INFORMATION
  Report Type: Spontaneous
  Country: US (occurrence: US)
  Receive Date: 20190123
  Receipt Date: 20190123
  Transmission Date: 20190417
  Serious: Yes (Other)
  Sender: FDA-Public Use
  Company Number: US-TEVA-2019-US-1001437

PATIENT
  Age: 74 Year
  Sex: Male

DRUGS (6)
  1. GENTAMICIN. [Suspect]
     Active Substance: GENTAMICIN
     Indication: LACTOBACILLUS INFECTION
  2. VANCOMYCIN [Concomitant]
     Active Substance: VANCOMYCIN
     Indication: BACTERAEMIA
     Dosage: 3000 MILLIGRAM DAILY;
     Route: 065
  3. AMPICILLIN-SULBACTAM [Concomitant]
     Active Substance: AMPICILLIN SODIUM\SULBACTAM SODIUM
     Indication: BACTERAEMIA
     Dosage: 6 GRAM DAILY;
     Route: 065
  4. AMPICILLIN-SULBACTAM [Concomitant]
     Active Substance: AMPICILLIN SODIUM\SULBACTAM SODIUM
     Indication: LACTOBACILLUS INFECTION
  5. GENTAMICIN. [Suspect]
     Active Substance: GENTAMICIN
     Indication: BACTERAEMIA
     Route: 065
  6. VANCOMYCIN [Concomitant]
     Active Substance: VANCOMYCIN
     Indication: LACTOBACILLUS INFECTION

REACTIONS (1)
  - Drug-induced liver injury [Unknown]
